FAERS Safety Report 19611127 (Version 1)
Quarter: 2021Q3

REPORT INFORMATION
  Report Type: Spontaneous
  Country: CA (occurrence: CA)
  Receive Date: 20210726
  Receipt Date: 20210726
  Transmission Date: 20211014
  Serious: Yes (Death)
  Sender: FDA-Public Use
  Company Number: CA-PFIZER INC-2021887469

PATIENT
  Age: 75 Year
  Sex: Female

DRUGS (2)
  1. XALKORI [Suspect]
     Active Substance: CRIZOTINIB
     Dosage: 1 DF
     Dates: start: 20210707, end: 20210707
  2. XALKORI [Suspect]
     Active Substance: CRIZOTINIB
     Dosage: 2 DF
     Dates: start: 20210708

REACTIONS (1)
  - Death [Fatal]

NARRATIVE: CASE EVENT DATE: 20210710
